FAERS Safety Report 17926061 (Version 1)
Quarter: 2020Q2

REPORT INFORMATION
  Report Type: Spontaneous
  Country: IT (occurrence: IT)
  Receive Date: 20200622
  Receipt Date: 20200622
  Transmission Date: 20200714
  Serious: Yes (Other)
  Sender: FDA-Public Use
  Company Number: IT-JUBILANT PHARMA LTD-2019IT000892

PATIENT
  Age: 63 Year
  Sex: Male

DRUGS (1)
  1. TETRAKIS (2-METHOXYISOBUTYL ISONITRILE) COPPER (I) TETRAFLUOROBORATE [Suspect]
     Active Substance: TETRAKIS(2-METHOXYISOBUTYLISOCYANIDE)COPPER(I) TETRAFLUOROBORATE
     Indication: SCAN MYOCARDIAL PERFUSION
     Dosage: UNK

REACTIONS (3)
  - Pruritus [Recovered/Resolved]
  - Dermatitis exfoliative [Recovered/Resolved]
  - Eosinophilia [Recovered/Resolved]
